FAERS Safety Report 17829926 (Version 1)
Quarter: 2020Q2

REPORT INFORMATION
  Report Type: Spontaneous
  Country: US (occurrence: US)
  Receive Date: 20200527
  Receipt Date: 20200527
  Transmission Date: 20200714
  Serious: No
  Sender: FDA-Public Use
  Company Number: US-GW PHARMA-202005USGW01887

PATIENT

DRUGS (1)
  1. EPIDIOLEX [Suspect]
     Active Substance: CANNABIDIOL
     Indication: EPILEPSY
     Dosage: 236 MILLIGRAM, BID
     Route: 048
     Dates: start: 20200328

REACTIONS (1)
  - Lip dry [Unknown]
